FAERS Safety Report 20961530 (Version 1)
Quarter: 2022Q2

REPORT INFORMATION
  Report Type: Spontaneous
  Country: ES (occurrence: ES)
  Receive Date: 20220615
  Receipt Date: 20220615
  Transmission Date: 20220720
  Serious: Yes (Hospitalization)
  Sender: FDA-Public Use
  Company Number: None

PATIENT
  Age: 75 Year
  Sex: Female
  Weight: 55 kg

DRUGS (3)
  1. FUROSEMIDE [Interacting]
     Active Substance: FUROSEMIDE
     Indication: Cardiac failure
     Dosage: 0.50-0-0 (DISCONTINUED DURING ADMISSION AND RESUMED AT DISCHARGE)
     Route: 048
     Dates: start: 20220304, end: 20220321
  2. SPIRONOLACTONE [Interacting]
     Active Substance: SPIRONOLACTONE
     Indication: Cardiac failure
     Dosage: 0.5-0-0 (DISCONTINUED DURING ADMISSION AND RESUMED AT DISCHARGE)
     Route: 048
     Dates: start: 20220304, end: 20220321
  3. CAPTOPRIL\HYDROCHLOROTHIAZIDE [Interacting]
     Active Substance: CAPTOPRIL\HYDROCHLOROTHIAZIDE
     Indication: Hypertension
     Dosage: STRENGTH: 20MG/12.5MG, 0.5-0-0
     Route: 048
     Dates: start: 20220304, end: 20220321

REACTIONS (2)
  - Hyponatraemia [Recovered/Resolved]
  - Drug interaction [Unknown]

NARRATIVE: CASE EVENT DATE: 20220320
